FAERS Safety Report 16836824 (Version 2)
Quarter: 2019Q4

REPORT INFORMATION
  Report Type: Report from Study
  Country: JP (occurrence: JP)
  Receive Date: 20190922
  Receipt Date: 20191007
  Transmission Date: 20200122
  Serious: Yes (Death)
  Sender: FDA-Public Use
  Company Number: JP-BEH-2019107253

PATIENT
  Age: 87 Year
  Sex: Male
  Weight: 44.5 kg

DRUGS (6)
  1. INOVAN [DOPAMINE HYDROCHLORIDE] [Concomitant]
     Indication: SHOCK HAEMORRHAGIC
     Dosage: UNK
     Route: 065
     Dates: start: 20180617, end: 20180618
  2. BERIPLEX P/N [Suspect]
     Active Substance: COAGULATION FACTOR IX HUMAN\COAGULATION FACTOR VII HUMAN\COAGULATION FACTOR X HUMAN\PROTEIN C\PROTEIN S HUMAN\PROTHROMBIN
     Indication: HAEMORRHAGE
     Dosage: 1200 INTERNATIONAL UNIT
     Route: 042
     Dates: start: 20180617
  3. BERIPLEX P/N [Suspect]
     Active Substance: COAGULATION FACTOR IX HUMAN\COAGULATION FACTOR VII HUMAN\COAGULATION FACTOR X HUMAN\PROTEIN C\PROTEIN S HUMAN\PROTHROMBIN
     Indication: HAEMORRHAGE
     Dosage: 1200 INTERNATIONAL UNIT
     Route: 042
     Dates: start: 20180617
  4. MEYLON [Concomitant]
     Active Substance: SODIUM BICARBONATE
     Indication: ACIDOSIS
     Dosage: UNK
     Route: 065
     Dates: start: 20180618, end: 20180618
  5. WARFARIN [Concomitant]
     Active Substance: WARFARIN
     Indication: PROPHYLAXIS
  6. WARFARIN [Concomitant]
     Active Substance: WARFARIN
     Indication: ATRIAL FIBRILLATION
     Dosage: 1.5 MILLIGRAM
     Route: 048
     Dates: start: 20120101, end: 20180616

REACTIONS (2)
  - Drug ineffective [Fatal]
  - Shock haemorrhagic [Fatal]

NARRATIVE: CASE EVENT DATE: 20180618
